FAERS Safety Report 4747846-8 (Version None)
Quarter: 2005Q3

REPORT INFORMATION
  Report Type: 
  Country: None (occurrence: None)
  Receive Date: 20050818
  Receipt Date: 20041129
  Transmission Date: 20060218
  Serious: No
  Sender: FDA-Public Use
  Company Number: US-BRISTOL-MYERS SQUIBB COMPANY-12778494

PATIENT
  Sex: Female

DRUGS (1)
  1. MEGACE [Suspect]
     Route: 048

REACTIONS (1)
  - CONTUSION [None]
